FAERS Safety Report 4974536-9 (Version None)
Quarter: 2006Q2

REPORT INFORMATION
  Report Type: 
  Country: None (occurrence: None)
  Receive Date: 20060410
  Receipt Date: 20060327
  Transmission Date: 20061013
  Serious: Yes (Hospitalization)
  Sender: FDA-Public Use
  Company Number: 2006037516

PATIENT
  Age: 53 Year
  Sex: Female
  Weight: 52 kg

DRUGS (4)
  1. LYRICA [Suspect]
     Indication: FIBROMYALGIA
     Dosage: (75 MG)
     Dates: start: 20060207, end: 20060101
  2. RELPAX [Suspect]
     Indication: MIGRAINE
  3. PAROXETINE HYDROCHLORIDE [Concomitant]
  4. ESTRADIOL [Concomitant]

REACTIONS (18)
  - AGITATION [None]
  - BALANCE DISORDER [None]
  - BRADYCARDIA [None]
  - BREAST DISCOMFORT [None]
  - CONDITION AGGRAVATED [None]
  - CONFUSIONAL STATE [None]
  - EUPHORIC MOOD [None]
  - FALL [None]
  - FRACTURED COCCYX [None]
  - HALLUCINATIONS, MIXED [None]
  - HEARING IMPAIRED [None]
  - MIGRAINE [None]
  - NERVOUSNESS [None]
  - NIGHT SWEATS [None]
  - PAIN [None]
  - TACHYCARDIA [None]
  - VISUAL DISTURBANCE [None]
  - WEIGHT INCREASED [None]
